FAERS Safety Report 8848848 (Version 1)
Quarter: 2012Q4

REPORT INFORMATION
  Report Type: 
  Country: US (occurrence: US)
  Receive Date: 20121018
  Receipt Date: 20121018
  Transmission Date: 20130627
  Serious: Yes (Other)
  Sender: FDA-Public Use
  Company Number: US-BAYER-2012-106968

PATIENT
  Age: 48 Year
  Sex: Female

DRUGS (4)
  1. YAZ [Suspect]
  2. GIANVI [Suspect]
  3. DIAZEPAM [Concomitant]
     Dosage: 5 mg, UNK
  4. IBUPROFEN [Concomitant]
     Dosage: 600 mg, UNK

REACTIONS (2)
  - Deep vein thrombosis [Recovered/Resolved]
  - Thrombophlebitis superficial [None]
